FAERS Safety Report 7964948-3 (Version None)
Quarter: 2011Q4

REPORT INFORMATION
  Report Type: 
  Country: None (occurrence: None)
  Receive Date: 20111208
  Receipt Date: 20111208
  Transmission Date: 20120403
  Serious: Yes (Life-Threatening)
  Sender: FDA-Public Use
  Company Number: None

PATIENT
  Sex: Female
  Weight: 60 kg

DRUGS (1)
  1. DABIGATRAN [Suspect]
     Indication: ATRIAL FIBRILLATION
     Dosage: 150MG
     Route: 048

REACTIONS (3)
  - RENAL FAILURE ACUTE [None]
  - COAGULOPATHY [None]
  - GASTROINTESTINAL HAEMORRHAGE [None]
